FAERS Safety Report 10505356 (Version 1)
Quarter: 2014Q4

REPORT INFORMATION
  Report Type: Spontaneous
  Country: US (occurrence: US)
  Receive Date: 20141008
  Receipt Date: 20141008
  Transmission Date: 20150528
  Serious: No
  Sender: FDA-Public Use
  Company Number: US-ELI_LILLY_AND_COMPANY-US201410000864

PATIENT
  Sex: Female

DRUGS (2)
  1. PROZAC [Suspect]
     Active Substance: FLUOXETINE HYDROCHLORIDE
     Dosage: UNK
  2. PROZAC [Suspect]
     Active Substance: FLUOXETINE HYDROCHLORIDE
     Indication: DEPRESSION
     Dosage: 20 MG, UNKNOWN
     Route: 065
     Dates: start: 1994, end: 2010

REACTIONS (1)
  - Weight increased [Unknown]
